FAERS Safety Report 6214273-6 (Version None)
Quarter: 2009Q2

REPORT INFORMATION
  Report Type: 
  Country: None (occurrence: None)
  Receive Date: 20090604
  Receipt Date: 20090602
  Transmission Date: 20091009
  Serious: Yes (Death)
  Sender: FDA-Public Use
  Company Number: PHHY2009NZ18582

PATIENT
  Sex: Male

DRUGS (11)
  1. CLOZARIL [Suspect]
     Indication: SCHIZOPHRENIA
     Dosage: 100 MG MANE, 125 MG NOCTE
     Dates: start: 19970115
  2. INHIBACE ^ANDREU^ [Concomitant]
     Dosage: 0.5 MG DAILY
  3. ASPIRIN [Concomitant]
     Dosage: 1 DF, UNK
  4. BETALOC - SLOW RELEASE [Concomitant]
     Dosage: 47.5 MG DAILY
  5. BEZALIP - SLOW RELEASE [Concomitant]
     Dosage: 400 MG NOCTE
  6. DIGOXIN [Concomitant]
     Dosage: 0.25 MG DAILY
  7. FUROSEMIDE [Concomitant]
     Dosage: 0.5 DF, UNK
  8. GLICLAZIDE [Concomitant]
     Dosage: 2 DF, BID
  9. LIPEX [Concomitant]
     Dosage: 1.5 DF, DAILY
  10. NITROLINGUAL [Concomitant]
     Dosage: 400 UG, PRN
     Route: 048
  11. SOMAC [Concomitant]
     Dosage: 40 MG DAILY

REACTIONS (1)
  - DEATH [None]
